FAERS Safety Report 9147506 (Version 1)
Quarter: 2013Q1

REPORT INFORMATION
  Report Type: Spontaneous
  Country: US (occurrence: None)
  Receive Date: 20130219
  Receipt Date: 20130219
  Transmission Date: 20140127
  Serious: Yes (Death)
  Sender: FDA-Public Use
  Company Number: 2013P1002027

PATIENT
  Age: 58 Year
  Sex: Male

DRUGS (8)
  1. CARISOPRODOL [Suspect]
  2. ZOLPIDEM [Suspect]
  3. PROMETHAZINE [Suspect]
  4. DIPHENHYDRAMINE [Suspect]
  5. CITALOPRAM [Suspect]
  6. METAXALONE [Suspect]
  7. TEMAZEPAM [Suspect]
  8. HYDROCODONE [Suspect]

REACTIONS (4)
  - Completed suicide [None]
  - Toxicity to various agents [None]
  - Cardiomegaly [None]
  - Lung consolidation [None]
